FAERS Safety Report 9924820 (Version 2)
Quarter: 2014Q2

REPORT INFORMATION
  Report Type: Report from Study
  Country: US (occurrence: US)
  Receive Date: 20140226
  Receipt Date: 20140423
  Transmission Date: 20141212
  Serious: Yes (Hospitalization)
  Sender: FDA-Public Use
  Company Number: US-UCBSA-113482

PATIENT
  Age: 66 Year
  Sex: Female
  Weight: 39.9 kg

DRUGS (15)
  1. CIMZIA [Suspect]
     Indication: CROHN^S DISEASE
     Route: 058
     Dates: start: 20130910, end: 20140110
  2. CIMZIA [Suspect]
     Indication: CROHN^S DISEASE
     Route: 058
     Dates: start: 20130726, end: 20130810
  3. ENTOCORT EC [Concomitant]
     Indication: CROHN^S DISEASE
     Dates: start: 201307, end: 20131231
  4. METHOTREXATE [Concomitant]
     Indication: CROHN^S DISEASE
     Dates: start: 2011
  5. ULTRAM [Concomitant]
     Indication: PAIN
     Route: 048
  6. VICODIN [Concomitant]
     Indication: PAIN
     Dosage: 5-500MG
     Route: 048
     Dates: start: 2011
  7. CYANOCOBALAMIN [Concomitant]
     Indication: VITAMIN SUPPLEMENTATION
     Route: 030
  8. FOLVITE [Concomitant]
     Dosage: 1MG DAILY
     Route: 048
  9. QUININE SULFATE [Concomitant]
     Dosage: DOSE STRENGTH: 260MG, 324MG AS NEEDED
     Route: 048
  10. AMBIEN [Concomitant]
     Dosage: 5MG EVERY DAY AS NEEDED
     Route: 048
  11. TYLENOL [Concomitant]
     Indication: PYREXIA
     Dosage: ONCE EVERY 4 HOURS AS NEEDED
     Route: 048
  12. OSCAL D [Concomitant]
     Dosage: 1000MCG
     Route: 048
     Dates: start: 20130720
  13. LOMOTIL [Concomitant]
     Dosage: 2.5-0.025MG
     Route: 048
  14. MAG-OX [Concomitant]
     Dosage: 400MG
     Route: 048
     Dates: start: 20130720
  15. PROTONIX [Concomitant]
     Dosage: 40MG
     Route: 048
     Dates: start: 20130720

REACTIONS (1)
  - Crohn^s disease [Recovered/Resolved]
